FAERS Safety Report 8953548 (Version 2)
Quarter: 2013Q1

REPORT INFORMATION
  Report Type: Spontaneous
  Country: US (occurrence: US)
  Receive Date: 20121206
  Receipt Date: 20130121
  Transmission Date: 20140127
  Serious: No
  Sender: FDA-Public Use
  Company Number: US-PFIZER INC-2012296238

PATIENT
  Sex: Female

DRUGS (2)
  1. LYBREL [Suspect]
     Indication: ENDOMETRIOSIS
     Dosage: UNK
  2. LUPRON [Suspect]
     Indication: ENDOMETRIOSIS
     Dosage: UNK

REACTIONS (2)
  - Off label use [Unknown]
  - Drug ineffective [Unknown]
